FAERS Safety Report 9031927 (Version 2)
Quarter: 2013Q1

REPORT INFORMATION
  Report Type: Spontaneous
  Country: US (occurrence: US)
  Receive Date: 20130125
  Receipt Date: 20130222
  Transmission Date: 20140127
  Serious: Yes (Hospitalization)
  Sender: FDA-Public Use
  Company Number: US-PFIZER INC-2013031477

PATIENT
  Age: 64 Year
  Sex: Male
  Weight: 77.1 kg

DRUGS (2)
  1. LIPITOR [Suspect]
     Dosage: 20 MG, DAILY
     Dates: start: 2011
  2. ASPIRIN [Concomitant]
     Indication: ANTICOAGULANT THERAPY
     Dosage: 325 MG, DAILY

REACTIONS (1)
  - Myocardial infarction [Unknown]
